APPROVED DRUG PRODUCT: TOPAMAX
Active Ingredient: TOPIRAMATE
Strength: 100MG
Dosage Form/Route: TABLET;ORAL
Application: N020505 | Product #001 | TE Code: AB
Applicant: JANSSEN PHARMACEUTICALS INC
Approved: Dec 24, 1996 | RLD: Yes | RS: Yes | Type: RX